FAERS Safety Report 26112365 (Version 1)
Quarter: 2025Q4

REPORT INFORMATION
  Report Type: Spontaneous
  Country: JP (occurrence: JP)
  Receive Date: 20251202
  Receipt Date: 20251202
  Transmission Date: 20260118
  Serious: Yes (Death, Hospitalization)
  Sender: MERCK SHARP & DOHME LLC
  Company Number: JP-009507513-2355660

PATIENT
  Age: 9 Decade
  Sex: Male

DRUGS (9)
  1. KEYTRUDA [Suspect]
     Active Substance: PEMBROLIZUMAB
     Indication: Renal cell carcinoma
     Dates: start: 2024
  2. LENVIMA [Suspect]
     Active Substance: LENVATINIB
     Indication: Renal cell carcinoma
  3. NIFEDIPINE [Concomitant]
     Active Substance: NIFEDIPINE
  4. BISOPROLOL [Concomitant]
     Active Substance: BISOPROLOL
  5. ASPIRIN [Concomitant]
     Active Substance: ASPIRIN
  6. EVOCALCET [Concomitant]
     Active Substance: EVOCALCET
  7. FERROUS CITRATE [Concomitant]
     Active Substance: FERROUS CITRATE
  8. FEBUXOSTAT [Concomitant]
     Active Substance: FEBUXOSTAT
  9. DAPRODUSTAT [Concomitant]
     Active Substance: DAPRODUSTAT

REACTIONS (2)
  - Death [Fatal]
  - Acute myocardial infarction [Unknown]
